FAERS Safety Report 7241817-8 (Version None)
Quarter: 2011Q1

REPORT INFORMATION
  Report Type: 
  Country: None (occurrence: None)
  Receive Date: 20110114
  Receipt Date: 20101231
  Transmission Date: 20110831
  Serious: Yes (Life-Threatening, Hospitalization)
  Sender: FDA-Public Use
  Company Number: LEO-2011-00025

PATIENT
  Age: 89 Year
  Sex: Male

DRUGS (5)
  1. ASPAVOR (ATORVASTATIN CALCIUM) [Concomitant]
  2. ASPIRIN [Concomitant]
  3. INNOHEP [Suspect]
     Indication: EMBOLISM VENOUS
     Dosage: 0.8 ML (0.8 ML, 1 IN 1 D), SUBCUTANEOUS
     Route: 058
     Dates: start: 20101130, end: 20101227
  4. ALLOPURINOL [Concomitant]
  5. DICLOFENAC SODIUM [Concomitant]

REACTIONS (2)
  - CONDITION AGGRAVATED [None]
  - DEEP VEIN THROMBOSIS [None]
